FAERS Safety Report 4463793-3 (Version None)
Quarter: 2004Q3

REPORT INFORMATION
  Report Type: 
  Country: None (occurrence: None)
  Receive Date: 20040929
  Receipt Date: 20040916
  Transmission Date: 20050211
  Serious: Yes (Death)
  Sender: FDA-Public Use
  Company Number: 04H-150-0273575-00

PATIENT
  Age: 70 Year

DRUGS (1)
  1. MORPHINE SULFATE INJ [Suspect]
     Indication: PAIN MANAGEMENT
     Dosage: 5 MG

REACTIONS (1)
  - RESPIRATORY ARREST [None]
